FAERS Safety Report 25907853 (Version 2)
Quarter: 2025Q4

REPORT INFORMATION
  Report Type: Spontaneous
  Country: US (occurrence: US)
  Receive Date: 20251010
  Receipt Date: 20251113
  Transmission Date: 20260117
  Serious: No
  Sender: BIOGEN
  Company Number: US-BIOGEN-2025BI01317886

PATIENT
  Age: 25 Year
  Sex: Female

DRUGS (5)
  1. VUMERITY [Suspect]
     Active Substance: DIROXIMEL FUMARATE
     Indication: Multiple sclerosis
     Dates: start: 20250711
  2. VUMERITY [Suspect]
     Active Substance: DIROXIMEL FUMARATE
     Dates: start: 20250711
  3. KETOROLAC [Concomitant]
     Active Substance: KETOROLAC TROMETHAMINE
  4. TROMETHAMINE [Concomitant]
     Active Substance: TROMETHAMINE
  5. TAMSULOSIN HYDROCHLORIDE [Concomitant]
     Active Substance: TAMSULOSIN HYDROCHLORIDE

REACTIONS (7)
  - Product dose omission in error [Unknown]
  - Nephrolithiasis [Not Recovered/Not Resolved]
  - Gastrointestinal disorder [Unknown]
  - Abdominal discomfort [Recovered/Resolved]
  - Fatigue [Unknown]
  - Hypoaesthesia [Unknown]
  - Flushing [Recovered/Resolved]

NARRATIVE: CASE EVENT DATE: 20250101
